FAERS Safety Report 17026967 (Version 5)
Quarter: 2021Q1

REPORT INFORMATION
  Report Type: Report from Study
  Country: US (occurrence: US)
  Receive Date: 20191113
  Receipt Date: 20210327
  Transmission Date: 20210419
  Serious: No
  Sender: FDA-Public Use
  Company Number: NVSC2019US034288

PATIENT
  Sex: Male

DRUGS (3)
  1. ALEVE [Concomitant]
     Active Substance: NAPROXEN SODIUM
     Indication: PRODUCT USED FOR UNKNOWN INDICATION
     Dosage: UNK
     Route: 065
  2. COSENTYX [Suspect]
     Active Substance: SECUKINUMAB
     Indication: PSORIASIS
     Dosage: 300 MG, QMO
     Route: 058
     Dates: start: 20181121
  3. COSENTYX [Suspect]
     Active Substance: SECUKINUMAB
     Dosage: 300 MG, QMO
     Route: 058

REACTIONS (12)
  - Pain in extremity [Not Recovered/Not Resolved]
  - Arthralgia [Not Recovered/Not Resolved]
  - Flatulence [Not Recovered/Not Resolved]
  - Acne [Not Recovered/Not Resolved]
  - Headache [Unknown]
  - Product dose omission issue [Unknown]
  - Ingrown hair [Not Recovered/Not Resolved]
  - Nail pitting [Not Recovered/Not Resolved]
  - Skin discolouration [Not Recovered/Not Resolved]
  - Tinea pedis [Not Recovered/Not Resolved]
  - Pain [Not Recovered/Not Resolved]
  - Skin disorder [Not Recovered/Not Resolved]
